FAERS Safety Report 24425750 (Version 1)
Quarter: 2024Q4

REPORT INFORMATION
  Report Type: Spontaneous
  Country: FR (occurrence: FR)
  Receive Date: 20241011
  Receipt Date: 20241011
  Transmission Date: 20250114
  Serious: Yes (Life-Threatening, Hospitalization)
  Sender: ACCORD
  Company Number: None

PATIENT
  Age: 18 Year
  Sex: Female
  Weight: 45 kg

DRUGS (12)
  1. OXALIPLATIN [Suspect]
     Active Substance: OXALIPLATIN
     Indication: Hodgkin^s disease stage III
     Dosage: TOTAL DOSE IS 620 MG
     Dates: start: 20240429, end: 20240625
  2. GEMCITABINE [Suspect]
     Active Substance: GEMCITABINE
     Indication: Hodgkin^s disease stage III
     Dosage: TOTAL DOSE IS 6358 MG
     Dates: start: 20240119, end: 20240216
  3. ADCETRIS [Suspect]
     Active Substance: BRENTUXIMAB VEDOTIN
     Indication: Hodgkin^s disease stage III
     Dosage: STRENGTH: 50 MG, TOTAL DOSE IS 310 MG
     Dates: start: 20240429, end: 20240625
  4. BLEOMYCIN SULFATE [Suspect]
     Active Substance: BLEOMYCIN SULFATE
     Indication: Hodgkin^s disease stage III
     Dosage: TOTAL DOSE IS 57.9 MG
     Dates: start: 20230512, end: 20230719
  5. DOXORUBICIN HYDROCHLORIDE [Suspect]
     Active Substance: DOXORUBICIN HYDROCHLORIDE
     Indication: Hodgkin^s disease stage III
     Dosage: TOTAL DOSE IS 403 MG
     Dates: start: 20230505, end: 20240216
  6. CYTARABINE [Suspect]
     Active Substance: CYTARABINE
     Indication: Hodgkin^s disease stage III
     Dosage: TOTAL DOSE IS 19100 MG, STRENGTH: 1 G/20 ML
     Dates: start: 20240430, end: 20240626
  7. DEXAMETHASONE [Suspect]
     Active Substance: DEXAMETHASONE
     Indication: Hodgkin^s disease stage III
     Dosage: TOTAL DOSE IS 480 MG
     Dates: start: 20240429, end: 20240628
  8. CYCLOPHOSPHAMIDE [Suspect]
     Active Substance: CYCLOPHOSPHAMIDE
     Indication: Hodgkin^s disease stage III
     Dosage: TOTAL DOSE 11060 MG
     Dates: start: 20230505, end: 20230828
  9. ETOPOPHOS [Suspect]
     Active Substance: ETOPOSIDE PHOSPHATE
     Indication: Hodgkin^s disease stage III
     Dosage: STRENGTH: 100 MG, LYOPHILISATE FOR PARENTERAL USE
     Dates: start: 20230505, end: 20230830
  10. NAVELBINE [Suspect]
     Active Substance: VINORELBINE TARTRATE
     Indication: Hodgkin^s disease stage III
     Dosage: STRENGTH: 50 MG/5 ML, SOLUTION FOR INJECTION IN VIAL, TOTAL DOSE IS 128 MG
     Dates: start: 20240119, end: 20240216
  11. PEMBROLIZUMAB [Suspect]
     Active Substance: PEMBROLIZUMAB
     Indication: Hodgkin^s disease stage III
     Dosage: TOTAL DOSE IS 800 MG
     Dates: start: 20240119, end: 20240402
  12. VINCRISTINE [Suspect]
     Active Substance: VINCRISTINE
     Indication: Hodgkin^s disease stage III
     Dosage: TOTAL DOSE IS 9.32 MG
     Dates: start: 20230512, end: 20230904

REACTIONS (2)
  - Cardiac failure [Recovered/Resolved]
  - Condition aggravated [Recovered/Resolved]

NARRATIVE: CASE EVENT DATE: 20240229
